FAERS Safety Report 10188057 (Version 1)
Quarter: 2014Q2

REPORT INFORMATION
  Report Type: Spontaneous
  Country: US (occurrence: US)
  Receive Date: 20140522
  Receipt Date: 20140522
  Transmission Date: 20141212
  Serious: No
  Sender: FDA-Public Use
  Company Number: US-SA-2013SA098102

PATIENT
  Age: 71 Year
  Sex: Male
  Weight: 147 kg

DRUGS (5)
  1. LANTUS SOLOSTAR [Suspect]
     Dosage: DOSE:52 UNIT(S)
     Route: 051
     Dates: start: 201109
  2. SOLOSTAR [Concomitant]
     Dates: start: 201109
  3. LEVOTHYROXINE [Concomitant]
     Indication: THYROID DISORDER
     Route: 065
     Dates: start: 2011
  4. SPIRONOLACTONE [Concomitant]
     Indication: FLUID RETENTION
     Route: 065
     Dates: start: 2011
  5. ENALAPRIL [Concomitant]
     Indication: BLOOD PRESSURE
     Route: 065
     Dates: start: 2010

REACTIONS (1)
  - Deafness [Unknown]
